FAERS Safety Report 7958179-0 (Version None)
Quarter: 2011Q4

REPORT INFORMATION
  Report Type: 
  Country: None (occurrence: None)
  Receive Date: 20111205
  Receipt Date: 20111128
  Transmission Date: 20120403
  Serious: Yes (Death, Life-Threatening, Other)
  Sender: FDA-Public Use
  Company Number: JP-CEPHALON-2011000279

PATIENT
  Sex: Male

DRUGS (11)
  1. RABEPRAZOLE SODIUM [Concomitant]
     Dates: end: 20110104
  2. REBAMIPIDE [Concomitant]
     Dates: end: 20110104
  3. BROTIZOLAM [Concomitant]
     Dates: end: 20110104
  4. FLUCONAZOLE [Concomitant]
     Dates: end: 20110104
  5. AMINO ACIDS NOS W/CARBOHYD NOS/ELECTROL NOS [Concomitant]
     Dates: start: 20101230, end: 20110108
  6. MEDIUM [Concomitant]
     Dates: start: 20101227, end: 20101230
  7. DEXAMETHASONE SODIUM PHOSPHATE [Concomitant]
     Dates: start: 20101227, end: 20110108
  8. SULFAMETHOXAZOLE [Concomitant]
     Dates: end: 20110104
  9. PALONOSETRON HYDROCHLORIDE [Concomitant]
     Dates: start: 20101228, end: 20101228
  10. BENDAMUSTINE HCL [Suspect]
     Indication: NON-HODGKIN'S LYMPHOMA
     Route: 042
     Dates: start: 20101228, end: 20101229
  11. INSULIN ASPART [Concomitant]
     Dates: end: 20101231

REACTIONS (5)
  - DIABETES MELLITUS [None]
  - PLATELET COUNT DECREASED [None]
  - RENAL IMPAIRMENT [None]
  - LYMPHOCYTE COUNT DECREASED [None]
  - NON-HODGKIN'S LYMPHOMA [None]
